FAERS Safety Report 7784992-9 (Version None)
Quarter: 2011Q3

REPORT INFORMATION
  Report Type: 
  Country: None (occurrence: None)
  Receive Date: 20110928
  Receipt Date: 20110922
  Transmission Date: 20111222
  Serious: Yes (Hospitalization, Other)
  Sender: FDA-Public Use
  Company Number: PHHY2011CA24799

PATIENT
  Sex: Female

DRUGS (5)
  1. PREDNISOLONE [Concomitant]
  2. FELODIPINE [Concomitant]
  3. ZOLEDRONOC ACID [Suspect]
     Indication: OSTEOPOROSIS
     Dosage: 5 MG
     Route: 042
     Dates: start: 20100720
  4. LANSOPRAZOLE [Concomitant]
  5. AZATHIOPRINE [Concomitant]

REACTIONS (6)
  - MALAISE [None]
  - SMALL INTESTINAL OBSTRUCTION [None]
  - WEIGHT DECREASED [None]
  - VOMITING [None]
  - DIARRHOEA [None]
  - PYREXIA [None]
